FAERS Safety Report 18187539 (Version 3)
Quarter: 2021Q1

REPORT INFORMATION
  Report Type: Other
  Country: US (occurrence: US)
  Receive Date: 20200824
  Receipt Date: 20210222
  Transmission Date: 20210419
  Serious: Yes (Other)
  Sender: FDA-Public Use
  Company Number: US-ROCHE-2663786

PATIENT

DRUGS (5)
  1. LOPINAVIR;RITONAVIR [Concomitant]
     Active Substance: LOPINAVIR\RITONAVIR
  2. RIBAVIRIN. [Concomitant]
     Active Substance: RIBAVIRIN
  3. TOCILIZUMAB. [Suspect]
     Active Substance: TOCILIZUMAB
     Indication: COVID-19
  4. HYDROXYCHLOROQUINE [Concomitant]
     Active Substance: HYDROXYCHLOROQUINE
  5. TOCILIZUMAB. [Suspect]
     Active Substance: TOCILIZUMAB
     Indication: CYTOKINE RELEASE SYNDROME
     Route: 042

REACTIONS (14)
  - Pneumonia escherichia [Unknown]
  - Pneumonia pseudomonal [Unknown]
  - Candida infection [Unknown]
  - Pneumonia bacterial [Unknown]
  - Wound infection [Unknown]
  - Enterobacter pneumonia [Unknown]
  - Off label use [Unknown]
  - Cytomegalovirus infection [Unknown]
  - Clostridium difficile infection [Unknown]
  - Burkholderia infection [Unknown]
  - Intentional product use issue [Unknown]
  - Osteomyelitis [Unknown]
  - Bacteraemia [Unknown]
  - Clostridial infection [Unknown]
